FAERS Safety Report 23507732 (Version 1)
Quarter: 2024Q1

REPORT INFORMATION
  Report Type: Spontaneous
  Country: US (occurrence: US)
  Receive Date: 20240209
  Receipt Date: 20240209
  Transmission Date: 20240410
  Serious: No
  Sender: FDA-Public Use
  Company Number: US-PFIZER INC-202400036247

PATIENT
  Age: 35 Year
  Sex: Female

DRUGS (6)
  1. IBRANCE [Suspect]
     Active Substance: PALBOCICLIB
     Indication: Breast cancer metastatic
     Dosage: ONCE DAILY (14 DAYS ON, 7 DAYS OFF
     Dates: start: 20220201
  2. TRASTUZUMAB [Concomitant]
     Active Substance: TRASTUZUMAB
     Dates: start: 20200918
  3. PERTUZUMAB [Concomitant]
     Active Substance: PERTUZUMAB
     Dates: start: 20200918
  4. LETROZOLE [Concomitant]
     Active Substance: LETROZOLE
     Dates: start: 20210201
  5. TRENTAL [Concomitant]
     Active Substance: PENTOXIFYLLINE
     Dates: start: 20220901
  6. KEPPRA XR [Concomitant]
     Active Substance: LEVETIRACETAM
     Dates: start: 20211201

REACTIONS (2)
  - Onychoclasis [Not Recovered/Not Resolved]
  - Nail disorder [Not Recovered/Not Resolved]
